FAERS Safety Report 21031391 (Version 2)
Quarter: 2022Q3

REPORT INFORMATION
  Report Type: Spontaneous
  Country: TR (occurrence: TR)
  Receive Date: 20220701
  Receipt Date: 20220801
  Transmission Date: 20221027
  Serious: Yes (Hospitalization)
  Sender: FDA-Public Use
  Company Number: TR-NOVOPROD-931105

PATIENT
  Sex: Male
  Weight: 3.4 kg

DRUGS (2)
  1. LEVEMIR [Suspect]
     Active Substance: INSULIN DETEMIR
     Indication: Gestational diabetes
     Dosage: 6 IU, QD
     Route: 064
  2. LEVEMIR [Suspect]
     Active Substance: INSULIN DETEMIR
     Dosage: 8 IU, QD
     Route: 064
     Dates: start: 20220420, end: 20220523

REACTIONS (3)
  - Pulmonary oedema [Recovered/Resolved]
  - Neonatal pneumonia [Recovered/Resolved]
  - Foetal exposure during pregnancy [Recovered/Resolved]

NARRATIVE: CASE EVENT DATE: 20220523
